FAERS Safety Report 4808312-4 (Version None)
Quarter: 2005Q4

REPORT INFORMATION
  Report Type: 
  Country: None (occurrence: None)
  Receive Date: 20051021
  Receipt Date: 20040205
  Transmission Date: 20060501
  Serious: No
  Sender: FDA-Public Use
  Company Number: DE_040212930

PATIENT
  Age: 52 Year
  Sex: Female

DRUGS (1)
  1. ZYPREXA [Suspect]
     Dosage: 7.5 MG DAY
     Dates: start: 20040101, end: 20040101

REACTIONS (2)
  - BREAST PAIN [None]
  - LEUKOPENIA [None]
